FAERS Safety Report 25141868 (Version 2)
Quarter: 2025Q2

REPORT INFORMATION
  Report Type: Spontaneous
  Country: JP (occurrence: JP)
  Receive Date: 20250331
  Receipt Date: 20250418
  Transmission Date: 20250716
  Serious: Yes (Death)
  Sender: ROCHE
  Company Number: JP-CHUGAI-2025010099

PATIENT
  Age: 9 Decade
  Sex: Male

DRUGS (4)
  1. POLIVY [Suspect]
     Active Substance: POLATUZUMAB VEDOTIN-PIIQ
     Indication: Diffuse large B-cell lymphoma
     Route: 042
  2. DOXORUBICIN HYDROCHLORIDE [Concomitant]
     Active Substance: DOXORUBICIN HYDROCHLORIDE
     Indication: Diffuse large B-cell lymphoma
     Route: 042
  3. CYCLOPHOSPHAMIDE [Concomitant]
     Active Substance: CYCLOPHOSPHAMIDE
     Indication: Diffuse large B-cell lymphoma
     Route: 042
  4. PREDNISOLONE [Concomitant]
     Active Substance: PREDNISOLONE
     Indication: Diffuse large B-cell lymphoma
     Route: 050

REACTIONS (1)
  - Interstitial lung disease [Fatal]

NARRATIVE: CASE EVENT DATE: 20241119
